FAERS Safety Report 8741855 (Version 3)
Quarter: 2012Q4

REPORT INFORMATION
  Report Type: 
  Country: US (occurrence: US)
  Receive Date: 20120829
  Receipt Date: 20121008
  Transmission Date: 20130627
  Serious: No
  Sender: FDA-Public Use
  Company Number: US-PFIZER INC-2012115184

PATIENT
  Age: 50 Year
  Sex: Female
  Weight: 104 kg

DRUGS (13)
  1. GLUCOTROL XL [Suspect]
     Indication: DIABETES PROPHYLAXIS
     Dosage: 10 mg, 1x/day
     Route: 048
     Dates: end: 2012
  2. GLUCOTROL XL [Suspect]
     Indication: DIABETES MELLITUS
     Dosage: UNK
     Route: 048
  3. ADDERALL [Concomitant]
     Indication: HYPERSOMNIA
     Dosage: 20 mg, 2x/day
  4. GLUCOPHAGE [Concomitant]
     Indication: DIABETES MELLITUS
     Dosage: 500 mg, 2x/day
  5. LISINOPRIL [Concomitant]
     Indication: DIABETES MELLITUS
     Dosage: 2.5mg daily
  6. NORVASC [Concomitant]
     Indication: RAYNAUD^S PHENOMENON
     Dosage: 5mg daily
  7. EFFEXOR [Concomitant]
     Dosage: UNK
  8. METHOTREXATE [Concomitant]
     Dosage: UNK
  9. PEPCID [Concomitant]
     Dosage: UNK
  10. ZANTAC [Concomitant]
     Indication: GASTROOESOPHAGEAL REFLUX DISEASE
     Dosage: UNK
  11. CYMBALTA [Concomitant]
     Indication: DEPRESSION
     Dosage: 60 mg daily
  12. EFEXOR XR [Concomitant]
     Indication: DEPRESSION
     Dosage: 150 mg daily
  13. TUMS [Concomitant]
     Indication: GASTROOESOPHAGEAL REFLUX DISEASE
     Dosage: UNK

REACTIONS (4)
  - Drug ineffective [Unknown]
  - Medication residue [Unknown]
  - Product solubility abnormal [Unknown]
  - Product physical issue [Unknown]
